FAERS Safety Report 8554527-1 (Version None)
Quarter: 2012Q3

REPORT INFORMATION
  Report Type: 
  Country: None (occurrence: None)
  Receive Date: 20120731
  Receipt Date: 20120724
  Transmission Date: 20120928
  Serious: Yes (Hospitalization)
  Sender: FDA-Public Use
  Company Number: US-B.I. PHARMACEUTICALS,INC./RIDGEFIELD-2012-BP-14809BP

PATIENT
  Sex: Female
  Weight: 41.73 kg

DRUGS (5)
  1. METOPROLOL TARTRATE [Concomitant]
     Dosage: 25 MG
     Dates: start: 20120125
  2. PRADAXA [Suspect]
     Indication: CEREBROVASCULAR ACCIDENT PROPHYLAXIS
  3. PROTONIX [Concomitant]
     Indication: GASTROOESOPHAGEAL REFLUX DISEASE
     Dosage: 40 MG
     Route: 048
     Dates: start: 20110823
  4. PRADAXA [Suspect]
     Indication: ATRIAL FIBRILLATION
     Dosage: 150 MG
     Route: 048
     Dates: start: 20120425
  5. DILTIAZEM [Concomitant]
     Dosage: 240 MG

REACTIONS (2)
  - CELLULITIS [None]
  - RENAL FAILURE ACUTE [None]
